FAERS Safety Report 15338273 (Version 1)
Quarter: 2018Q3

REPORT INFORMATION
  Report Type: Spontaneous
  Country: US (occurrence: US)
  Receive Date: 20180831
  Receipt Date: 20180831
  Transmission Date: 20181010
  Serious: Yes (Other)
  Sender: FDA-Public Use
  Company Number: US-FRESENIUS KABI-FK201809193

PATIENT
  Age: 60 Year
  Sex: Female

DRUGS (2)
  1. OXYCODONE [Suspect]
     Active Substance: OXYCODONE
     Indication: PAIN MANAGEMENT
     Dosage: 300 ORAL MORPHINE EQUIVALENTS A DAY IN THE FORM OF OXYCODONE IMMEDIATE AND EXTENDED RELEASE FORMULAT
     Route: 048
  2. HYDROMORPHONE HCL [Suspect]
     Active Substance: HYDROMORPHONE HYDROCHLORIDE
     Indication: PAIN MANAGEMENT
     Route: 042

REACTIONS (2)
  - Respiratory distress [Unknown]
  - Delirium [Recovered/Resolved]
